FAERS Safety Report 7113325-6 (Version None)
Quarter: 2010Q4

REPORT INFORMATION
  Report Type: 
  Country: None (occurrence: None)
  Receive Date: 20101119
  Receipt Date: 20100922
  Transmission Date: 20110411
  Serious: No
  Sender: FDA-Public Use
  Company Number: A0882639A

PATIENT
  Age: 51 Year
  Sex: Male

DRUGS (7)
  1. BUPROPION HYDROCHLORIDE [Suspect]
     Dosage: 450MG PER DAY
     Route: 048
     Dates: start: 20080101
  2. PREVACID [Concomitant]
  3. VITAMIN TAB [Concomitant]
  4. CHAMOMILE [Concomitant]
  5. EYE DROPS [Concomitant]
  6. FISH OIL [Concomitant]
  7. ALCOHOL [Concomitant]

REACTIONS (1)
  - OVERDOSE [None]
